FAERS Safety Report 7433898-3 (Version None)
Quarter: 2011Q2

REPORT INFORMATION
  Report Type: 
  Country: None (occurrence: None)
  Receive Date: 20110425
  Receipt Date: 20110414
  Transmission Date: 20111010
  Serious: Yes (Death, Hospitalization, Disabling, Other)
  Sender: FDA-Public Use
  Company Number: US-ELI_LILLY_AND_COMPANY-US201103007058

PATIENT
  Sex: Female

DRUGS (23)
  1. ASCORBIC ACID [Concomitant]
     Dosage: UNK, UNKNOWN
     Route: 065
  2. FORTEO [Suspect]
     Indication: OSTEOPOROSIS
     Dosage: 20 UG, QD
     Dates: start: 20110201, end: 20110212
  3. VITAMIN D [Concomitant]
     Dosage: UNK, UNKNOWN
     Route: 065
  4. TYLENOL (CAPLET) [Concomitant]
     Dosage: UNK, UNKNOWN
     Route: 065
  5. NYSTATIN [Concomitant]
     Dosage: UNK, UNKNOWN
     Route: 065
  6. BLOOD TRANSFUSION, AUXILIARY PRODUCTS [Concomitant]
  7. PREDNISONE [Concomitant]
     Dosage: UNK, UNKNOWN
     Route: 065
  8. METFORMIN [Concomitant]
     Dosage: UNK, UNKNOWN
     Route: 065
  9. POTASSIUM [Concomitant]
     Dosage: UNK, UNKNOWN
     Route: 065
  10. MESTINON [Concomitant]
     Dosage: UNK, UNKNOWN
     Route: 065
  11. VITAMINS [Concomitant]
     Dosage: UNK, UNKNOWN
     Route: 065
  12. VITAMIN E [Concomitant]
     Dosage: UNK, UNKNOWN
     Route: 065
  13. LASIX [Concomitant]
     Dosage: UNK, UNKNOWN
     Route: 065
  14. TRIMETHOPRIM AND SULFAMETHOXAZOLE DS [Concomitant]
     Dosage: UNK, UNKNOWN
     Route: 065
  15. PREVACID [Concomitant]
     Dosage: UNK, UNKNOWN
     Route: 065
  16. OXYGEN [Concomitant]
     Dosage: UNK, UNKNOWN
     Route: 065
  17. PROCHLORPERAZINE TAB [Concomitant]
     Dosage: UNK, UNKNOWN
     Route: 065
  18. SUCRALFATE [Concomitant]
     Dosage: UNK, UNKNOWN
     Route: 065
  19. VITAMIN B-12 [Concomitant]
     Dosage: UNK, UNKNOWN
     Route: 065
  20. LORTAB [Concomitant]
     Dosage: UNK, UNKNOWN
     Route: 065
  21. KADIAN [Concomitant]
     Dosage: UNK, UNKNOWN
     Route: 065
  22. IMMUNE GLOBULIN NOS [Concomitant]
     Route: 042
  23. VITAMIN D [Concomitant]
     Dosage: UNK, UNKNOWN
     Route: 065

REACTIONS (14)
  - FATIGUE [None]
  - LIMB INJURY [None]
  - DIARRHOEA [None]
  - ABDOMINAL DISTENSION [None]
  - ILL-DEFINED DISORDER [None]
  - HYPOPHAGIA [None]
  - VOMITING [None]
  - HAEMORRHAGE [None]
  - CONSTIPATION [None]
  - DYSURIA [None]
  - NAUSEA [None]
  - ASTHENIA [None]
  - CARDIAC ARREST [None]
  - ABASIA [None]
